FAERS Safety Report 7029483-8 (Version None)
Quarter: 2010Q4

REPORT INFORMATION
  Report Type: 
  Country: None (occurrence: None)
  Receive Date: 20101005
  Receipt Date: 20100927
  Transmission Date: 20110411
  Serious: Yes (Hospitalization, Other)
  Sender: FDA-Public Use
  Company Number: US-AMGEN-QUU432895

PATIENT
  Sex: Male
  Weight: 70.8 kg

DRUGS (30)
  1. ARANESP [Suspect]
     Indication: DIALYSIS
     Route: 042
     Dates: start: 20070920, end: 20100827
  2. EPOGEN [Suspect]
     Indication: DIALYSIS
  3. RENALTABS [Concomitant]
  4. PREDNISONE [Concomitant]
     Route: 048
  5. MYCOPHENOLATE MOFETIL [Concomitant]
     Route: 048
  6. LABETALOL HYDROCHLORIDE [Concomitant]
     Route: 048
  7. LOVAZA [Concomitant]
     Route: 048
  8. CEFEPIME [Concomitant]
  9. GENTAMYCIN SULFATE [Concomitant]
     Route: 061
  10. CALCIUM CARBONATE [Concomitant]
     Route: 048
  11. MULTIPLE VITAMINS [Concomitant]
     Route: 048
  12. COPPER [Concomitant]
     Dates: start: 20100112
  13. VITAMIN E [Concomitant]
     Route: 048
  14. ZINC [Concomitant]
     Route: 048
  15. BIOTIN [Concomitant]
     Route: 048
  16. CYANOCOBALAMIN [Concomitant]
     Route: 048
  17. VITAMIN A [Concomitant]
  18. MEPHYTON [Concomitant]
     Route: 048
  19. COENZYME Q10 [Concomitant]
     Route: 048
  20. L-LYSINE [Concomitant]
     Route: 048
  21. BACITRACIN [Concomitant]
  22. CAFFEINE [Concomitant]
     Route: 048
  23. ASPIRIN [Concomitant]
  24. UNSPECIFIED MEDICATION [Concomitant]
  25. LISINOPRIL [Concomitant]
     Route: 048
     Dates: start: 20070926
  26. VENOFER [Concomitant]
  27. ZYPREXA [Concomitant]
  28. VALTREX [Concomitant]
     Route: 048
  29. SEPTRA DS [Concomitant]
  30. CALCIUM ACETATE [Concomitant]
     Route: 048

REACTIONS (5)
  - ANAEMIA [None]
  - APLASIA PURE RED CELL [None]
  - EPISTAXIS [None]
  - MALNUTRITION [None]
  - NEUTROPENIA [None]
